FAERS Safety Report 5476685-8 (Version None)
Quarter: 2007Q4

REPORT INFORMATION
  Report Type: 
  Country: None (occurrence: None)
  Receive Date: 20071002
  Receipt Date: 20070922
  Transmission Date: 20080405
  Serious: Yes (Other)
  Sender: FDA-Public Use
  Company Number: CHPA2007US09979

PATIENT
  Age: 66 Year
  Sex: Female
  Weight: 64.4 kg

DRUGS (2)
  1. BENEFIBER FIBER SUPPLEMENT SUGAR FREE (NCH)(GUAR GUM) POWDER [Suspect]
     Indication: NUTRITIONAL SUPPORT
     Dosage: 3 TSP, ONCE/SINGLE FOR 3 YEARS, ORAL
     Route: 048
     Dates: start: 20040101, end: 20070922
  2. EVOXIN(DOMPERIDONE MALEATE) [Suspect]
     Dosage: TABLET, ORAL
     Route: 048

REACTIONS (3)
  - COELIAC DISEASE [None]
  - DERMATITIS HERPETIFORMIS [None]
  - NO THERAPEUTIC RESPONSE [None]
